FAERS Safety Report 10451763 (Version 3)
Quarter: 2014Q4

REPORT INFORMATION
  Report Type: Spontaneous
  Country: TW (occurrence: TW)
  Receive Date: 20140915
  Receipt Date: 20141006
  Transmission Date: 20150528
  Serious: Yes (Hospitalization)
  Sender: FDA-Public Use
  Company Number: TW-ROCHE-1460992

PATIENT
  Age: 53 Year
  Sex: Female

DRUGS (3)
  1. ACTEMRA [Suspect]
     Active Substance: TOCILIZUMAB
     Dosage: 4 MG/KG
     Route: 042
     Dates: start: 20140828, end: 20140828
  2. ACTEMRA [Suspect]
     Active Substance: TOCILIZUMAB
     Indication: RHEUMATOID ARTHRITIS
     Dosage: 4 MG/KG
     Route: 042
     Dates: start: 20140521, end: 20140521
  3. ACTEMRA [Suspect]
     Active Substance: TOCILIZUMAB
     Dosage: 4 MG/KG
     Route: 042
     Dates: start: 20140730, end: 20140730

REACTIONS (5)
  - Pancytopenia [Recovering/Resolving]
  - Mouth ulceration [Recovered/Resolved]
  - Hypotension [Recovered/Resolved]
  - Glomerulonephritis rapidly progressive [Recovered/Resolved]
  - Shock [Recovering/Resolving]

NARRATIVE: CASE EVENT DATE: 20140904
